FAERS Safety Report 5958274-1 (Version None)
Quarter: 2008Q4

REPORT INFORMATION
  Report Type: 
  Country: None (occurrence: None)
  Receive Date: 20081119
  Receipt Date: 20081112
  Transmission Date: 20090506
  Serious: Yes (Other)
  Sender: FDA-Public Use
  Company Number: US-ELI_LILLY_AND_COMPANY-US200809006052

PATIENT
  Sex: Female

DRUGS (14)
  1. HUMALOG [Suspect]
     Indication: DIABETES MELLITUS
     Dosage: 76 U, EACH MORNING
     Dates: start: 20010101
  2. HUMALOG [Suspect]
     Dosage: 90 U, EACH EVENING
  3. HUMALOG [Suspect]
  4. CYMBALTA [Concomitant]
     Dosage: 60 MG, EACH MORNING
     Dates: start: 20060301
  5. SYMLIN [Concomitant]
     Dosage: 20 MG, EACH MORNING
  6. SYMLIN [Concomitant]
     Dosage: 20 MG, EACH EVENING
  7. AVALIDE [Concomitant]
     Dosage: UNK, EACH MORNING
  8. AGGRENOX [Concomitant]
     Dosage: UNK, EACH MORNING
  9. AGGRENOX [Concomitant]
     Dosage: UNK, EACH EVENING
  10. GABAPENTIN [Concomitant]
     Dosage: UNK, UNK
  11. GLYCOPYRROLATE [Concomitant]
     Dosage: 2 MG, EACH EVENING
  12. VITAMINS [Concomitant]
     Dosage: UNK, DAILY (1/D)
  13. LIPITOR [Concomitant]
     Dosage: 40 MG, EACH EVENING
  14. ZETIA [Concomitant]
     Dosage: 10 MG, EACH EVENING

REACTIONS (9)
  - BLINDNESS UNILATERAL [None]
  - BLOOD GLUCOSE INCREASED [None]
  - CEREBROVASCULAR ACCIDENT [None]
  - DRUG DISPENSING ERROR [None]
  - GLYCOSYLATED HAEMOGLOBIN INCREASED [None]
  - HEADACHE [None]
  - HYPOACUSIS [None]
  - IRRITABLE BOWEL SYNDROME [None]
  - OPTIC NERVE INJURY [None]
